FAERS Safety Report 6031863-4 (Version None)
Quarter: 2008Q4

REPORT INFORMATION
  Report Type: 
  Country: None (occurrence: None)
  Receive Date: 20081231
  Receipt Date: 20081114
  Transmission Date: 20090506
  Serious: Yes (Other)
  Sender: FDA-Public Use
  Company Number: 180705USA

PATIENT

DRUGS (2)
  1. LAMOTRIGINE [Suspect]
     Dosage: (100 MG) ,ORAL
     Route: 048
  2. VALPROATE SODIUM [Suspect]

REACTIONS (2)
  - CONVULSION [None]
  - DRUG INEFFECTIVE [None]
